FAERS Safety Report 14168104 (Version 1)
Quarter: 2017Q4

REPORT INFORMATION
  Report Type: Spontaneous
  Country: US (occurrence: US)
  Receive Date: 20171107
  Receipt Date: 20171107
  Transmission Date: 20180321
  Serious: No
  Sender: FDA-Public Use
  Company Number: US-SA-2017SA169245

PATIENT
  Age: 79 Year
  Sex: Female
  Weight: 92.9 kg

DRUGS (2)
  1. SOLOSTAR [Suspect]
     Active Substance: DEVICE
     Indication: TYPE 2 DIABETES MELLITUS
     Dates: start: 201701
  2. TOUJEO [Suspect]
     Active Substance: INSULIN GLARGINE
     Indication: TYPE 2 DIABETES MELLITUS
     Dosage: DOSE-50 TO 55 UNITS
     Route: 051
     Dates: start: 201701

REACTIONS (3)
  - Device issue [Unknown]
  - Blood glucose increased [Unknown]
  - Unevaluable event [Unknown]
